FAERS Safety Report 10629242 (Version 1)
Quarter: 2014Q4

REPORT INFORMATION
  Report Type: Spontaneous
  Country: US (occurrence: US)
  Receive Date: 20141205
  Receipt Date: 20141205
  Transmission Date: 20150529
  Serious: No
  Sender: FDA-Public Use
  Company Number: US-BRISTOL-MYERS SQUIBB COMPANY-21233291

PATIENT
  Age: 67 Year
  Sex: Female
  Weight: 65.76 kg

DRUGS (1)
  1. ABILIFY [Suspect]
     Active Substance: ARIPIPRAZOLE

REACTIONS (7)
  - Drug dose omission [Unknown]
  - Malaise [Unknown]
  - Headache [Unknown]
  - Depressed mood [Unknown]
  - Hypersomnia [Unknown]
  - Asthenia [Unknown]
  - Bradyphrenia [Unknown]
